FAERS Safety Report 20969305 (Version 1)
Quarter: 2022Q2

REPORT INFORMATION
  Report Type: Spontaneous
  Country: US (occurrence: US)
  Receive Date: 20220616
  Receipt Date: 20220616
  Transmission Date: 20220721
  Serious: No
  Sender: FDA-Public Use
  Company Number: US-SK LIFE SCIENCE, INC-SKPVG-2022-000267

PATIENT

DRUGS (1)
  1. XCOPRI [Suspect]
     Active Substance: CENOBAMATE
     Indication: Epilepsy
     Dosage: 100 MILLIGRAM, QD (STILL ON MEDICATION)
     Route: 065
     Dates: start: 20220210

REACTIONS (4)
  - Apathy [Unknown]
  - Fatigue [Unknown]
  - Somnolence [Not Recovered/Not Resolved]
  - Disturbance in attention [Unknown]
